FAERS Safety Report 4500804-0 (Version None)
Quarter: 2004Q4

REPORT INFORMATION
  Report Type: 
  Country: None (occurrence: None)
  Receive Date: 20041115
  Receipt Date: 20041101
  Transmission Date: 20050328
  Serious: Yes (Death, Other)
  Sender: FDA-Public Use
  Company Number: GBWYE170003NOV04

PATIENT
  Age: 61 Year
  Sex: Male
  Weight: 85 kg

DRUGS (7)
  1. ENBREL [Suspect]
     Indication: RHEUMATOID ARTHRITIS
     Dosage: UNKNOWN
     Dates: start: 20030606
  2. METHOTREXATE [Suspect]
     Dosage: 25 MG, FREQUENCY UNKNOWN
     Route: 048
     Dates: end: 20040221
  3. OMEGA 3 [Concomitant]
     Dosage: UNKNOWN
  4. CALCICHEW [Concomitant]
     Dosage: UNKNOWN
     Route: 048
  5. MULTIBIONTA [Concomitant]
     Dosage: UNKNOWN
     Route: 048
  6. ALENDRONATE SODIUM [Concomitant]
     Route: 048
  7. PREDNISOLONE [Concomitant]
     Dosage: 10 MG, FREQUENCY UNKNOWN
     Route: 048

REACTIONS (2)
  - EYE DISORDER [None]
  - MYOCARDIAL INFARCTION [None]
